FAERS Safety Report 19506281 (Version 1)
Quarter: 2021Q3

REPORT INFORMATION
  Report Type: Spontaneous
  Country: US (occurrence: US)
  Receive Date: 20210708
  Receipt Date: 20210708
  Transmission Date: 20211014
  Serious: No
  Sender: FDA-Public Use
  Company Number: None

PATIENT
  Age: 51 Year
  Sex: Female

DRUGS (1)
  1. HUMIRA [Suspect]
     Active Substance: ADALIMUMAB
     Indication: RHEUMATOID ARTHRITIS
     Dosage: IN THE ABDOMEN OR THIGH ROTATING INJECTION SITES AS DIRECTED
     Route: 058
     Dates: start: 202009

REACTIONS (3)
  - Therapy interrupted [None]
  - Memory impairment [None]
  - Product dose omission issue [None]
